FAERS Safety Report 11316066 (Version 2)
Quarter: 2016Q3

REPORT INFORMATION
  Report Type: Report from Study
  Country: PK (occurrence: PK)
  Receive Date: 20150728
  Receipt Date: 20160812
  Transmission Date: 20161109
  Serious: Yes (Death)
  Sender: FDA-Public Use
  Company Number: PHHY2015PK089927

PATIENT
  Age: 58 Year
  Sex: Female

DRUGS (1)
  1. AFINITOR [Suspect]
     Active Substance: EVEROLIMUS
     Indication: RENAL CELL CARCINOMA
     Dosage: 1 DF, QD
     Route: 048
     Dates: start: 20150219

REACTIONS (1)
  - Death [Fatal]

NARRATIVE: CASE EVENT DATE: 20150321
